FAERS Safety Report 19422214 (Version 2)
Quarter: 2021Q3

REPORT INFORMATION
  Report Type: Spontaneous
  Country: US (occurrence: US)
  Receive Date: 20210616
  Receipt Date: 20210709
  Transmission Date: 20211014
  Serious: Yes (Other)
  Sender: FDA-Public Use
  Company Number: US-GILEAD-2021-0535551

PATIENT
  Age: 52 Year
  Sex: Female

DRUGS (6)
  1. DOXEPIN HYDROCHLORIDE. [Concomitant]
     Active Substance: DOXEPIN HYDROCHLORIDE
  2. EPCLUSA [Suspect]
     Active Substance: SOFOSBUVIR\VELPATASVIR
     Indication: CHRONIC HEPATITIS C
     Dosage: 1 DOSAGE FORM, QD
     Route: 048
     Dates: start: 202102
  3. ALBUTEROL SULFATE. [Concomitant]
     Active Substance: ALBUTEROL SULFATE
  4. FLUTICASONE PROPIONATE. [Concomitant]
     Active Substance: FLUTICASONE PROPIONATE
  5. QUETIAPINE FUMARATE. [Concomitant]
     Active Substance: QUETIAPINE FUMARATE
  6. LITHIUM. [Concomitant]
     Active Substance: LITHIUM

REACTIONS (1)
  - Treatment failure [Not Recovered/Not Resolved]

NARRATIVE: CASE EVENT DATE: 20210602
